FAERS Safety Report 7130303-1 (Version None)
Quarter: 2010Q4

REPORT INFORMATION
  Report Type: 
  Country: None (occurrence: None)
  Receive Date: 20101201
  Receipt Date: 20101129
  Transmission Date: 20110411
  Serious: Yes (Hospitalization)
  Sender: FDA-Public Use
  Company Number: DE-TYCO HEALTHCARE/MALLINCKRODT-T201002325

PATIENT
  Sex: Female
  Weight: 100 kg

DRUGS (1)
  1. OPTIRAY 350 [Suspect]
     Indication: COMPUTERISED TOMOGRAM
     Dosage: 100 ML, SINGLE
     Route: 042
     Dates: start: 20101119, end: 20101119

REACTIONS (4)
  - CIRCULATORY COLLAPSE [None]
  - DYSPNOEA [None]
  - NAUSEA [None]
  - UNRESPONSIVE TO STIMULI [None]
